FAERS Safety Report 11152059 (Version 1)
Quarter: 2015Q2

REPORT INFORMATION
  Report Type: Spontaneous
  Country: US (occurrence: None)
  Receive Date: 20150529
  Receipt Date: 20150529
  Transmission Date: 20150821
  Serious: Yes (Hospitalization)
  Sender: FDA-Public Use
  Company Number: None

PATIENT
  Age: 70 Year
  Sex: Male
  Weight: 146.71 kg

DRUGS (36)
  1. NAB-PACLITAXEL [Suspect]
     Active Substance: PACLITAXEL
     Indication: METASTASIS
     Route: 042
     Dates: start: 20150507
  2. CARBOPLATIN AUC5 [Suspect]
     Active Substance: CARBOPLATIN
     Indication: HEAD AND NECK CANCER METASTATIC
     Dosage: AUC 5 IV
     Route: 042
     Dates: start: 20150507
  3. CARBOPLATIN AUC5 [Suspect]
     Active Substance: CARBOPLATIN
     Indication: SQUAMOUS CELL CARCINOMA
     Dosage: AUC 5 IV
     Route: 042
     Dates: start: 20150507
  4. AMLODIPINE BESYLATE. [Concomitant]
     Active Substance: AMLODIPINE BESYLATE
  5. FUROSEMIDE. [Concomitant]
     Active Substance: FUROSEMIDE
  6. LANSOPRAZOLE. [Concomitant]
     Active Substance: LANSOPRAZOLE
  7. NYSTATIN. [Concomitant]
     Active Substance: NYSTATIN
  8. CETUXIMAB [Suspect]
     Active Substance: CETUXIMAB
     Indication: HEAD AND NECK CANCER METASTATIC
     Dosage: 250 IV
     Route: 042
     Dates: start: 20150507
  9. NITROSTAT [Concomitant]
     Active Substance: NITROGLYCERIN
  10. OXYCODONE [Concomitant]
     Active Substance: OXYCODONE
  11. PRAVASTATIN SODIUM. [Concomitant]
     Active Substance: PRAVASTATIN SODIUM
  12. SOTALOL HCI [Concomitant]
  13. TERAZOSIN HCI [Concomitant]
  14. TRIAMCINOLONE ACETONIDE. [Concomitant]
     Active Substance: TRIAMCINOLONE ACETONIDE
  15. WARFARIN SODIUM. [Concomitant]
     Active Substance: WARFARIN SODIUM
  16. NAB-PACLITAXEL [Suspect]
     Active Substance: PACLITAXEL
     Indication: HEAD AND NECK CANCER METASTATIC
     Route: 042
     Dates: start: 20150507
  17. FINASTERIDE. [Concomitant]
     Active Substance: FINASTERIDE
  18. ISOSORBIDE MONOITRATE ER [Concomitant]
  19. LOSARTAN POTASSIUM. [Concomitant]
     Active Substance: LOSARTAN POTASSIUM
  20. MUCINEX [Concomitant]
     Active Substance: GUAIFENESIN
  21. BUPROPION HCI [Concomitant]
  22. CLOTRIMAZOLE EXTRERNAL CREAM [Concomitant]
  23. MORPHINE SULFATE. [Concomitant]
     Active Substance: MORPHINE SULFATE
  24. ADVAIR HFA [Concomitant]
     Active Substance: FLUTICASONE PROPIONATE\SALMETEROL XINAFOATE
  25. DOCQLACE [Concomitant]
     Active Substance: DOCUSATE SODIUM
  26. METANX [Concomitant]
     Active Substance: LEVOMEFOLATE CALCIUM\METHYLCOBALAMIN\PYRIDOXAL PHOSPHATE ANHYDROUS
  27. METFORMIN HCI [Concomitant]
  28. POTASSIUM CHLORIDE. [Concomitant]
     Active Substance: POTASSIUM CHLORIDE
  29. PROCHLORPERAZINE MALEATE. [Concomitant]
     Active Substance: PROCHLORPERAZINE MALEATE
  30. CETUXIMAB [Suspect]
     Active Substance: CETUXIMAB
     Indication: SQUAMOUS CELL CARCINOMA
     Dosage: 250 IV
     Route: 042
     Dates: start: 20150507
  31. ASPIRIN. [Concomitant]
     Active Substance: ASPIRIN
  32. LEVAQUIN [Concomitant]
     Active Substance: LEVOFLOXACIN
  33. MULTIVITAMINS [Concomitant]
     Active Substance: VITAMINS
  34. SUDAFED [Concomitant]
     Active Substance: PSEUDOEPHEDRINE HYDROCHLORIDE
  35. RANITIDINE [Concomitant]
     Active Substance: RANITIDINE\RANITIDINE HYDROCHLORIDE
  36. ZYRTEC [Concomitant]
     Active Substance: CETIRIZINE HYDROCHLORIDE

REACTIONS (8)
  - Duodenal ulcer [None]
  - Respiratory distress [None]
  - Pulmonary embolism [None]
  - Pneumonia [None]
  - Dyspnoea [None]
  - Embolism [None]
  - Faeces discoloured [None]
  - Respiratory failure [None]

NARRATIVE: CASE EVENT DATE: 20150514
